FAERS Safety Report 20379499 (Version 1)
Quarter: 2022Q1

REPORT INFORMATION
  Report Type: Spontaneous
  Country: US (occurrence: None)
  Receive Date: 20220126
  Receipt Date: 20220126
  Transmission Date: 20220423
  Serious: Yes (Hospitalization, Other)
  Sender: FDA-Public Use
  Company Number: None

PATIENT
  Age: 45 Year
  Sex: Female
  Weight: 122.2 kg

DRUGS (10)
  1. TOCILIZUMAB [Suspect]
     Active Substance: TOCILIZUMAB
     Indication: COVID-19
     Dosage: FREQUENCY : DAILY;?
     Route: 042
     Dates: start: 20211226, end: 20211226
  2. CALCITRIOL [Concomitant]
     Active Substance: CALCITRIOL
     Dates: start: 20211225
  3. AMLODIPINE [Concomitant]
     Active Substance: AMLODIPINE BESYLATE
     Dates: start: 20211225
  4. CALCIUM ACETATE [Concomitant]
     Active Substance: CALCIUM ACETATE
     Dates: start: 20211230
  5. CARVEDILOL [Concomitant]
     Active Substance: CARVEDILOL
     Dates: start: 20211225
  6. Heparin 5000 units subq q8h [Concomitant]
     Dates: start: 20211227
  7. INSULIN LISPRO [Concomitant]
     Active Substance: INSULIN LISPRO
     Dates: start: 20211225
  8. MINERALS\VITAMINS [Concomitant]
     Active Substance: MINERALS\VITAMINS
     Dates: start: 20211225
  9. PANTOPRAZOLE [Concomitant]
     Active Substance: PANTOPRAZOLE
     Dates: start: 20211225
  10. PRAVASTATIN [Concomitant]
     Active Substance: PRAVASTATIN
     Dates: start: 20211225

REACTIONS (6)
  - Proteus test positive [None]
  - Blood culture positive [None]
  - Device related infection [None]
  - Haemodialysis [None]
  - Pelvic abscess [None]
  - Intestinal perforation [None]

NARRATIVE: CASE EVENT DATE: 20220126
